FAERS Safety Report 24565437 (Version 1)
Quarter: 2024Q4

REPORT INFORMATION
  Report Type: Spontaneous
  Country: ES (occurrence: ES)
  Receive Date: 20241030
  Receipt Date: 20241030
  Transmission Date: 20250115
  Serious: Yes (Other)
  Sender: RANBAXY
  Company Number: ES-EMA-DD-20191216-kakwani_d-145154

PATIENT
  Age: 81 Year
  Sex: Female

DRUGS (2)
  1. SERTRALINE [Suspect]
     Active Substance: SERTRALINE HYDROCHLORIDE
     Indication: Depression
     Dosage: 100 MILLIGRAM, DAILY
     Route: 065
  2. SERTRALINE [Suspect]
     Active Substance: SERTRALINE HYDROCHLORIDE
     Dosage: 50 MILLIGRAM, DAILY
     Route: 065

REACTIONS (5)
  - Parkinsonism [Recovered/Resolved]
  - Resting tremor [Recovered/Resolved]
  - Salivary hypersecretion [Recovered/Resolved]
  - Muscle rigidity [Recovered/Resolved]
  - Hypokinesia [Recovered/Resolved]
